FAERS Safety Report 25752970 (Version 2)
Quarter: 2025Q4

REPORT INFORMATION
  Report Type: Spontaneous
  Country: EU (occurrence: EU)
  Receive Date: 20250902
  Receipt Date: 20251007
  Transmission Date: 20260118
  Serious: Yes (Other)
  Sender: ELI LILLY AND COMPANY
  Company Number: None

PATIENT
  Age: 43 Year
  Sex: Female

DRUGS (1)
  1. MOUNJARO [Suspect]
     Active Substance: TIRZEPATIDE
     Indication: Weight control
     Dosage: (SINGLE INTAKE, DID NOT REMEMBER THE DOSE)
     Route: 058
     Dates: start: 20250728, end: 20250728

REACTIONS (3)
  - Metabolic acidosis [Unknown]
  - Ketoacidosis [Unknown]
  - Intentional product misuse [Unknown]
